FAERS Safety Report 16170899 (Version 5)
Quarter: 2021Q2

REPORT INFORMATION
  Report Type: Spontaneous
  Country: GB (occurrence: GB)
  Receive Date: 20190408
  Receipt Date: 20210630
  Transmission Date: 20210716
  Serious: Yes (Life-Threatening, Hospitalization, Congenital Anomaly, Other)
  Sender: FDA-Public Use
  Company Number: GB-PERRIGO-19GB004359

PATIENT

DRUGS (22)
  1. PARACETAMOL CODEINE PHOSPHATE HEMIHYDRATE [Suspect]
     Active Substance: ACETAMINOPHEN\CODEINE PHOSPHATE
     Indication: BACK DISORDER
     Dosage: UNK UNK, QD
     Route: 064
  2. PERFALGAN [Suspect]
     Active Substance: ACETAMINOPHEN
     Indication: PELVIC PAIN
     Dosage: PARENT: INDICATION: PELVIC PAIN
     Route: 064
  3. FLUOXETINE [Concomitant]
     Active Substance: FLUOXETINE HYDROCHLORIDE
     Indication: PRODUCT USED FOR UNKNOWN INDICATION
     Route: 064
  4. FLUOXETINE [Concomitant]
     Active Substance: FLUOXETINE HYDROCHLORIDE
     Indication: FOETAL EXPOSURE DURING PREGNANCY
     Dosage: UNK
     Route: 065
  5. PERFALGAN [Suspect]
     Active Substance: ACETAMINOPHEN
     Indication: FOETAL EXPOSURE DURING PREGNANCY
     Dosage: STAGGERED PARACETAMOL OVERDOSE(UNINTENTIONAL) OVER WEEKS AND DAYS PRIOR TO DELIVERY
     Route: 064
  6. PERFALGAN [Suspect]
     Active Substance: ACETAMINOPHEN
     Indication: PYELONEPHRITIS
     Dosage: UNK, 4X/DAY (QID)
     Route: 064
  7. ENOXAPARIN [Concomitant]
     Active Substance: ENOXAPARIN
     Indication: PRODUCT USED FOR UNKNOWN INDICATION
     Route: 064
  8. PARACETAMOL CODEINE PHOSPHATE HEMIHYDRATE [Suspect]
     Active Substance: ACETAMINOPHEN\CODEINE PHOSPHATE
     Indication: PELVIC PAIN
     Dosage: UP TO FOUR TIMES A DAY. 4X/DAY (QID)
     Route: 064
  9. CODEINE [Suspect]
     Active Substance: CODEINE
     Indication: FOETAL EXPOSURE DURING PREGNANCY
     Dosage: UNK
     Route: 064
  10. PERFALGAN [Suspect]
     Active Substance: ACETAMINOPHEN
     Indication: BACK DISORDER
     Dosage: UP TO FOUR TIMES A DAY, PARENT: INDICATION: BACK DISORDER
     Route: 064
  11. CEFRADINE [Concomitant]
     Active Substance: CEPHRADINE
     Indication: PYELONEPHRITIS
     Route: 064
  12. COCODAMOL [Suspect]
     Active Substance: ACETAMINOPHEN\CODEINE PHOSPHATE
     Indication: PELVIC PAIN
     Dosage: UNK, QD
     Route: 064
  13. COCODAMOL [Suspect]
     Active Substance: ACETAMINOPHEN\CODEINE PHOSPHATE
     Indication: FOETAL EXPOSURE DURING PREGNANCY
     Dosage: ABUSE, OVERDOSE
     Route: 064
  14. METRONIDAZOLE. [Concomitant]
     Active Substance: METRONIDAZOLE
     Indication: PYELONEPHRITIS
     Route: 064
  15. CODEINE [Suspect]
     Active Substance: CODEINE
     Indication: PELVIC PAIN
     Dosage: 4 OT, QD
     Route: 064
  16. COCODAMOL [Suspect]
     Active Substance: ACETAMINOPHEN\CODEINE PHOSPHATE
     Indication: BACK DISORDER
     Dosage: STAGGERED PARACETAMOL OVERDOSE(UNINTENTIONAL) OVER WEEKS AND DAYS PRIOR TO DELIVERY
     Route: 064
  17. PARACETAMOL CODEINE PHOSPHATE HEMIHYDRATE [Suspect]
     Active Substance: ACETAMINOPHEN\CODEINE PHOSPHATE
     Indication: FOETAL EXPOSURE DURING PREGNANCY
     Dosage: UNK, 4X/DAY (QID)
     Route: 064
  18. ENOXAPARIN [Concomitant]
     Active Substance: ENOXAPARIN
     Indication: FOETAL EXPOSURE DURING PREGNANCY
     Dosage: UNK
     Route: 064
  19. COCODAMOL [Suspect]
     Active Substance: ACETAMINOPHEN\CODEINE PHOSPHATE
     Indication: PRODUCT USED FOR UNKNOWN INDICATION
     Dosage: UNK
     Route: 064
  20. MORPHINE HYDROCHLORIDE [Concomitant]
     Active Substance: MORPHINE HYDROCHLORIDE
     Indication: PRODUCT USED FOR UNKNOWN INDICATION
     Route: 064
  21. CEFRADINE [Concomitant]
     Active Substance: CEPHRADINE
     Dosage: UNK
     Route: 064
  22. CODEINE [Suspect]
     Active Substance: CODEINE
     Indication: BACK DISORDER
     Dosage: UNK
     Route: 064

REACTIONS (23)
  - Foetal exposure during pregnancy [Unknown]
  - Premature baby [Unknown]
  - Respiratory distress [Recovered/Resolved]
  - Drug withdrawal syndrome neonatal [Recovered/Resolved]
  - Foetal arrhythmia [Recovered/Resolved]
  - Aphasia [Unknown]
  - Incubator therapy [Unknown]
  - Overdose [Unknown]
  - Foetal monitoring abnormal [Unknown]
  - Gingival discomfort [Unknown]
  - Heart rate irregular [Unknown]
  - Jaundice neonatal [Recovered/Resolved]
  - Dependence [Unknown]
  - Developmental delay [Not Recovered/Not Resolved]
  - Hepatic function abnormal [Unknown]
  - Hepatotoxicity [Recovered/Resolved]
  - Liver function test abnormal [Recovered/Resolved]
  - Tremor [Unknown]
  - Incorrect product administration duration [Unknown]
  - Malaise [Unknown]
  - Gait inability [Unknown]
  - Low birth weight baby [Unknown]
  - Language disorder [Unknown]
